FAERS Safety Report 22744380 (Version 2)
Quarter: 2024Q1

REPORT INFORMATION
  Report Type: Spontaneous
  Country: CA (occurrence: CA)
  Receive Date: 20230724
  Receipt Date: 20240216
  Transmission Date: 20240409
  Serious: Yes (Hospitalization, Other)
  Sender: FDA-Public Use
  Company Number: CA-HLS-202301755

PATIENT
  Age: 60 Year
  Sex: Male

DRUGS (56)
  1. BUSPIRONE [Suspect]
     Active Substance: BUSPIRONE HYDROCHLORIDE
     Indication: Psychotic disorder
     Dosage: AMOUNT: 60 MILLIGRAM
     Route: 065
  2. CLOZAPINE [Suspect]
     Active Substance: CLOZAPINE
     Indication: Psychotic disorder
     Dosage: 1 EVERY 1 DAYS?AMOUNT: 150 MILLIGRAM
     Route: 065
  3. CLOZAPINE [Suspect]
     Active Substance: CLOZAPINE
     Indication: Product used for unknown indication
     Dosage: 1 EVERY 1 DAYS?AMOUNT: 150 MILLIGRAM
     Route: 065
  4. CLOZAPINE [Suspect]
     Active Substance: CLOZAPINE
     Indication: Psychotic disorder
     Dosage: 1 EVERY 1 DAYS?AMOUNT: 625 MILLIGRAM?TABLETS DOSAGE FORM
     Route: 065
  5. CLOZAPINE [Suspect]
     Active Substance: CLOZAPINE
     Indication: Product used for unknown indication
     Dosage: 1 EVERY 1 DAYS?AMOUNT: 625 MILLIGRAM?TABLETS DOSAGE FORM
     Route: 065
  6. FLUOXETINE HYDROCHLORIDE [Suspect]
     Active Substance: FLUOXETINE HYDROCHLORIDE
     Indication: Obsessive-compulsive disorder
     Dosage: AMOUNT: 60 MILLIGRAM
     Route: 065
  7. FLUVOXAMINE [Suspect]
     Active Substance: FLUVOXAMINE
     Indication: Psychotic disorder
     Dosage: AMOUNT: 200 MILLIGRAM
     Route: 065
  8. OXAZEPAM [Suspect]
     Active Substance: OXAZEPAM
     Indication: Psychotic disorder
     Dosage: AMOUNT: 20 MILLIGRAM?TABLETS DOSAGE FORM
     Route: 065
  9. PROCYCLIDINE [Suspect]
     Active Substance: PROCYCLIDINE
     Indication: Schizoaffective disorder bipolar type
     Route: 065
  10. QUETIAPINE [Concomitant]
     Active Substance: QUETIAPINE
     Indication: Schizoaffective disorder bipolar type
     Dosage: 1 EVERY 1 DAYS?AMOUNT: 800 MILLIGRAM?TABLETS DOSAGE FORM
     Route: 065
  11. DIVALPROEX SODIUM [Suspect]
     Active Substance: DIVALPROEX SODIUM
     Indication: Schizoaffective disorder bipolar type
     Dosage: AMOUNT: 1500 MILLIGRAM
     Route: 065
  12. DIVALPROEX SODIUM [Suspect]
     Active Substance: DIVALPROEX SODIUM
     Indication: Schizoaffective disorder bipolar type
     Dosage: AMOUNT: 1500 MILLIGRAM?NOT SPECIFIED DOSAGE FORM
     Route: 065
  13. ZOPICLONE [Suspect]
     Active Substance: ZOPICLONE
     Indication: Psychotic disorder
     Dosage: AMOUNT: 15 MILLIGRAM?TABLETS DOSAGE FORM
     Route: 065
  14. ZUCLOPENTHIXOL DECANOATE [Suspect]
     Active Substance: ZUCLOPENTHIXOL DECANOATE
     Indication: Schizoaffective disorder bipolar type
     Dosage: 1 EVERY 1 WEEKS?AMOUNT: 450 MILLIGRAM
     Route: 065
  15. CARBAMAZEPINE [Concomitant]
     Active Substance: CARBAMAZEPINE
     Indication: Obsessive-compulsive disorder
     Dosage: AMOUNT: 200 MILLIGRAM
     Route: 065
  16. CARBAMAZEPINE [Concomitant]
     Active Substance: CARBAMAZEPINE
     Indication: Psychotic disorder
     Dosage: AMOUNT: 200 MILLIGRAM
     Route: 065
  17. CARBAMAZEPINE [Concomitant]
     Active Substance: CARBAMAZEPINE
     Indication: Product used for unknown indication
     Dosage: AMOUNT: 200 MILLIGRAM
     Route: 065
  18. CARBAMAZEPINE [Concomitant]
     Active Substance: CARBAMAZEPINE
     Indication: Obsessive-compulsive disorder
     Dosage: AMOUNT: 60 MILLIGRAM
     Route: 065
  19. CARBAMAZEPINE [Concomitant]
     Active Substance: CARBAMAZEPINE
     Indication: Psychotic disorder
     Dosage: AMOUNT: 60 MILLIGRAM
     Route: 065
  20. CARBAMAZEPINE [Concomitant]
     Active Substance: CARBAMAZEPINE
     Indication: Product used for unknown indication
     Dosage: AMOUNT: 60 MILLIGRAM
     Route: 065
  21. CARBAMAZEPINE [Concomitant]
     Active Substance: CARBAMAZEPINE
     Indication: Obsessive-compulsive disorder
     Dosage: 1 EVERY 1 DAYS?AMOUNT: 150 MILLIGRAM
     Route: 065
  22. CARBAMAZEPINE [Concomitant]
     Active Substance: CARBAMAZEPINE
     Indication: Psychotic disorder
     Dosage: 1 EVERY 1 DAYS?AMOUNT: 150 MILLIGRAM
     Route: 065
  23. CARBAMAZEPINE [Concomitant]
     Active Substance: CARBAMAZEPINE
     Indication: Product used for unknown indication
     Dosage: 1 EVERY 1 DAYS?AMOUNT: 150 MILLIGRAM
     Route: 065
  24. CARBAMAZEPINE [Concomitant]
     Active Substance: CARBAMAZEPINE
     Indication: Obsessive-compulsive disorder
     Dosage: 1 EVERY 1 DAYS?AMOUNT: 625 MILLIGRAM?TABLETS DOSAGE FORM
     Route: 065
  25. CARBAMAZEPINE [Concomitant]
     Active Substance: CARBAMAZEPINE
     Indication: Psychotic disorder
     Dosage: 1 EVERY 1 DAYS?AMOUNT: 625 MILLIGRAM?TABLETS DOSAGE FORM
     Route: 065
  26. CARBAMAZEPINE [Concomitant]
     Active Substance: CARBAMAZEPINE
     Indication: Product used for unknown indication
     Dosage: 1 EVERY 1 DAYS?AMOUNT: 625 MILLIGRAM?TABLETS DOSAGE FORM
     Route: 065
  27. CARBAMAZEPINE [Concomitant]
     Active Substance: CARBAMAZEPINE
     Indication: Obsessive-compulsive disorder
     Route: 065
  28. CARBAMAZEPINE [Concomitant]
     Active Substance: CARBAMAZEPINE
     Indication: Psychotic disorder
     Route: 065
  29. CARBAMAZEPINE [Concomitant]
     Active Substance: CARBAMAZEPINE
     Indication: Product used for unknown indication
     Route: 065
  30. CARBAMAZEPINE [Concomitant]
     Active Substance: CARBAMAZEPINE
     Indication: Obsessive-compulsive disorder
     Dosage: NOT SPECIFIED DOSAGE FORM
     Route: 065
  31. CARBAMAZEPINE [Concomitant]
     Active Substance: CARBAMAZEPINE
     Indication: Psychotic disorder
     Dosage: NOT SPECIFIED DOSAGE FORM
     Route: 065
  32. CARBAMAZEPINE [Concomitant]
     Active Substance: CARBAMAZEPINE
     Indication: Product used for unknown indication
     Dosage: NOT SPECIFIED DOSAGE FORM
     Route: 065
  33. LOXAPINE [Concomitant]
     Active Substance: LOXAPINE
     Indication: Psychotic disorder
     Dosage: AMOUNT: 15 MILLIGRAM?TABLETS DOSAGE FORM
     Route: 065
  34. LOXAPINE [Concomitant]
     Active Substance: LOXAPINE
     Indication: Schizoaffective disorder bipolar type
     Dosage: AMOUNT: 15 MILLIGRAM?TABLETS DOSAGE FORM
     Route: 065
  35. LOXAPINE [Concomitant]
     Active Substance: LOXAPINE
     Indication: Product used for unknown indication
     Dosage: AMOUNT: 15 MILLIGRAM?TABLETS DOSAGE FORM
     Route: 065
  36. LOXAPINE [Concomitant]
     Active Substance: LOXAPINE
     Indication: Psychotic disorder
     Dosage: AMOUNT: 1500 MILLIGRAM
     Route: 065
  37. LOXAPINE [Concomitant]
     Active Substance: LOXAPINE
     Indication: Schizoaffective disorder bipolar type
     Dosage: AMOUNT: 1500 MILLIGRAM
     Route: 065
  38. LOXAPINE [Concomitant]
     Active Substance: LOXAPINE
     Indication: Product used for unknown indication
     Dosage: AMOUNT: 1500 MILLIGRAM
     Route: 065
  39. LOXAPINE [Concomitant]
     Active Substance: LOXAPINE
     Indication: Psychotic disorder
     Dosage: AMOUNT: 1500 MILLIGRAM?NOT SPECIFIED DOSAGE FORM
     Route: 065
  40. LOXAPINE [Concomitant]
     Active Substance: LOXAPINE
     Indication: Schizoaffective disorder bipolar type
     Dosage: AMOUNT: 1500 MILLIGRAM?NOT SPECIFIED DOSAGE FORM
     Route: 065
  41. LOXAPINE [Concomitant]
     Active Substance: LOXAPINE
     Indication: Product used for unknown indication
     Dosage: AMOUNT: 1500 MILLIGRAM?NOT SPECIFIED DOSAGE FORM
     Route: 065
  42. LOXAPINE [Concomitant]
     Active Substance: LOXAPINE
     Indication: Psychotic disorder
     Dosage: AMOUNT: 20 MILLIGRAM?TABLETS DOSAGE FORM
     Route: 065
  43. LOXAPINE [Concomitant]
     Active Substance: LOXAPINE
     Indication: Schizoaffective disorder bipolar type
     Dosage: AMOUNT: 20 MILLIGRAM?TABLETS DOSAGE FORM
     Route: 065
  44. LOXAPINE [Concomitant]
     Active Substance: LOXAPINE
     Indication: Product used for unknown indication
     Dosage: AMOUNT: 20 MILLIGRAM?TABLETS DOSAGE FORM
     Route: 065
  45. LOXAPINE [Concomitant]
     Active Substance: LOXAPINE
     Indication: Psychotic disorder
     Dosage: 1 EVERY 1 DAYS?AMOUNT: 800 MILLIGRAM?TABLETS DOSAGE FORM
     Route: 065
  46. LOXAPINE [Concomitant]
     Active Substance: LOXAPINE
     Indication: Schizoaffective disorder bipolar type
     Dosage: 1 EVERY 1 DAYS?AMOUNT: 800 MILLIGRAM?TABLETS DOSAGE FORM
     Route: 065
  47. LOXAPINE [Concomitant]
     Active Substance: LOXAPINE
     Indication: Product used for unknown indication
     Dosage: 1 EVERY 1 DAYS?AMOUNT: 800 MILLIGRAM?TABLETS DOSAGE FORM
     Route: 065
  48. LOXAPINE [Concomitant]
     Active Substance: LOXAPINE
     Indication: Psychotic disorder
     Dosage: 1 EVERY 1 WEEKS?AMOUNT: 450 MILLIGRAM
     Route: 065
  49. LOXAPINE [Concomitant]
     Active Substance: LOXAPINE
     Indication: Schizoaffective disorder bipolar type
     Dosage: 1 EVERY 1 WEEKS?AMOUNT: 450 MILLIGRAM
     Route: 065
  50. LOXAPINE [Concomitant]
     Active Substance: LOXAPINE
     Indication: Product used for unknown indication
     Dosage: 1 EVERY 1 WEEKS?AMOUNT: 450 MILLIGRAM
     Route: 065
  51. LOXAPINE [Concomitant]
     Active Substance: LOXAPINE
     Indication: Psychotic disorder
     Route: 065
  52. LOXAPINE [Concomitant]
     Active Substance: LOXAPINE
     Indication: Schizoaffective disorder bipolar type
     Route: 065
  53. LOXAPINE [Concomitant]
     Active Substance: LOXAPINE
     Indication: Product used for unknown indication
     Route: 065
  54. LOXAPINE [Concomitant]
     Active Substance: LOXAPINE
     Indication: Psychotic disorder
     Dosage: NOT SPECIFIED DOSAGE FORM
     Route: 065
  55. LOXAPINE [Concomitant]
     Active Substance: LOXAPINE
     Indication: Schizoaffective disorder bipolar type
     Dosage: NOT SPECIFIED DOSAGE FORM
     Route: 065
  56. LOXAPINE [Concomitant]
     Active Substance: LOXAPINE
     Indication: Product used for unknown indication
     Dosage: NOT SPECIFIED DOSAGE FORM
     Route: 065

REACTIONS (10)
  - Aggression [Recovering/Resolving]
  - Condition aggravated [Recovering/Resolving]
  - Drug interaction [Recovering/Resolving]
  - Drug level increased [Recovering/Resolving]
  - Irritability [Recovering/Resolving]
  - Labelled drug-drug interaction medication error [Recovering/Resolving]
  - Obesity [Recovering/Resolving]
  - Orthostatic hypotension [Recovering/Resolving]
  - Sedation [Recovering/Resolving]
  - Tardive dyskinesia [Recovering/Resolving]
